FAERS Safety Report 9204539 (Version 2)
Quarter: 2013Q2

REPORT INFORMATION
  Report Type: Spontaneous
  Country: US (occurrence: None)
  Receive Date: 20120709
  Receipt Date: 20121107
  Transmission Date: 20140414
  Serious: Yes (Other)
  Sender: FDA-Public Use
  Company Number: 2012HGS-003449

PATIENT
  Age: 49 Year
  Sex: Female
  Weight: 93.9 kg

DRUGS (4)
  1. BENLYSTA [Suspect]
     Indication: SYSTEMIC LUPUS ERYTHEMATOSUS
     Dosage: 1 IN 28 D
     Dates: start: 20120312
  2. PLAQUENIL (HYDROCHLOROQUINE SULFATE) (HYDROCHLORQUINE SULFATE) [Concomitant]
  3. METHOTREXATE (METHOTREXATE) (METHOTREXATE) [Concomitant]
  4. HRT (PROGESTERONE W/ESTROGEN) (PROGESTERONE, ESTROGEN NOS) [Concomitant]

REACTIONS (13)
  - Somnolence [None]
  - Dizziness [None]
  - Decreased appetite [None]
  - Vertigo [None]
  - Fatigue [None]
  - Asthenia [None]
  - Nausea [None]
  - Anxiety [None]
  - Headache [None]
  - Insomnia [None]
  - Depression [None]
  - Candida infection [None]
  - Feeling abnormal [None]
